FAERS Safety Report 22400948 (Version 2)
Quarter: 2023Q2

REPORT INFORMATION
  Report Type: Spontaneous
  Country: IT (occurrence: IT)
  Receive Date: 20230602
  Receipt Date: 20230606
  Transmission Date: 20230721
  Serious: Yes (Death, Other)
  Sender: FDA-Public Use
  Company Number: IT-GILEAD-2023-0630948

PATIENT
  Age: 74 Year
  Sex: Male

DRUGS (1)
  1. TECARTUS [Suspect]
     Active Substance: BREXUCABTAGENE AUTOLEUCEL
     Indication: Product used for unknown indication
     Dosage: UNK
     Route: 042
     Dates: start: 20230501, end: 20230501

REACTIONS (7)
  - Death [Fatal]
  - Cytopenia [Unknown]
  - Febrile neutropenia [Unknown]
  - Cytokine release syndrome [Unknown]
  - Unevaluable event [Unknown]
  - Nervous system disorder [Unknown]
  - Infection [Unknown]

NARRATIVE: CASE EVENT DATE: 20230527
